FAERS Safety Report 8385306-6 (Version None)
Quarter: 2012Q2

REPORT INFORMATION
  Report Type: 
  Country: None (occurrence: None)
  Receive Date: 20120525
  Receipt Date: 20120516
  Transmission Date: 20120825
  Serious: No
  Sender: FDA-Public Use
  Company Number: US-BIOGENIDEC-2012BI017313

PATIENT
  Sex: Female

DRUGS (2)
  1. TYSABRI [Suspect]
     Route: 042
     Dates: start: 20110901
  2. TYSABRI [Suspect]
     Indication: MULTIPLE SCLEROSIS
     Route: 042
     Dates: start: 20090121, end: 20100604

REACTIONS (5)
  - TREMOR [None]
  - INCONTINENCE [None]
  - MULTIPLE SCLEROSIS [None]
  - COORDINATION ABNORMAL [None]
  - GAIT DISTURBANCE [None]
